FAERS Safety Report 10638768 (Version 1)
Quarter: 2014Q4

REPORT INFORMATION
  Report Type: Spontaneous
  Country: GB (occurrence: None)
  Receive Date: 20141204
  Receipt Date: 20141204
  Transmission Date: 20150529
  Serious: Yes (Hospitalization)
  Sender: FDA-Public Use
  Company Number: 2647142

PATIENT
  Age: 59 Year
  Sex: Female
  Weight: 50.6 kg

DRUGS (2)
  1. CEPHALEXIN. [Suspect]
     Active Substance: CEPHALEXIN
     Indication: LOWER RESPIRATORY TRACT INFECTION
     Dosage: COMMENCED 2 WEEKS AGO BY GP,
  2. PACLITAXEL. [Suspect]
     Active Substance: PACLITAXEL
     Indication: OESOPHAGEAL CARCINOMA
     Route: 042
     Dates: start: 20141021

REACTIONS (5)
  - Vomiting [None]
  - Performance status decreased [None]
  - Diarrhoea [None]
  - Blood potassium decreased [None]
  - Nausea [None]

NARRATIVE: CASE EVENT DATE: 20141023
